FAERS Safety Report 5159838-8 (Version None)
Quarter: 2006Q4

REPORT INFORMATION
  Report Type: 
  Country: None (occurrence: None)
  Receive Date: 20061129
  Receipt Date: 20060210
  Transmission Date: 20070319
  Serious: No
  Sender: FDA-Public Use
  Company Number: S2006US08449

PATIENT
  Age: 43 Year
  Sex: Female

DRUGS (3)
  1. WELLBUTRIN SR [Suspect]
     Indication: DEPRESSION
     Dosage: 150MG THREE TIMES PER DAY
     Route: 048
  2. PARNATE [Suspect]
     Indication: DEPRESSION
     Dosage: 10MG THREE TIMES PER DAY
     Route: 048
     Dates: start: 19980101
  3. ALKASELTZER [Concomitant]

REACTIONS (4)
  - FATIGUE [None]
  - OVERDOSE [None]
  - SEDATION [None]
  - SOMNOLENCE [None]
